FAERS Safety Report 6584795-7 (Version None)
Quarter: 2010Q1

REPORT INFORMATION
  Report Type: 
  Country: None (occurrence: None)
  Receive Date: 20100204
  Receipt Date: 20100120
  Transmission Date: 20100710
  Serious: Yes (Other)
  Sender: FDA-Public Use
  Company Number: AUR-APL-2010-00197

PATIENT
  Age: 52 Year
  Sex: Female

DRUGS (4)
  1. CLINDAMYCIN [Suspect]
     Indication: BRAIN ABSCESS
     Dosage: 450MG, TID
  2. AMOXICILLIN [Suspect]
     Indication: BRAIN ABSCESS
  3. WARFARIN [Concomitant]
  4. PHENYTOIN [Concomitant]

REACTIONS (10)
  - ABDOMINAL PAIN UPPER [None]
  - ALANINE AMINOTRANSFERASE INCREASED [None]
  - ASPARTATE AMINOTRANSFERASE INCREASED [None]
  - BLOOD ALKALINE PHOSPHATASE INCREASED [None]
  - BLOOD LACTATE DEHYDROGENASE INCREASED [None]
  - DIZZINESS [None]
  - GAMMA-GLUTAMYLTRANSFERASE INCREASED [None]
  - HEADACHE [None]
  - HEPATOTOXICITY [None]
  - MALAISE [None]
